FAERS Safety Report 6959514-2 (Version None)
Quarter: 2010Q3

REPORT INFORMATION
  Report Type: 
  Country: None (occurrence: None)
  Receive Date: 20100831
  Receipt Date: 20100823
  Transmission Date: 20110219
  Serious: Yes (Hospitalization, Disabling)
  Sender: FDA-Public Use
  Company Number: FR-BRISTOL-MYERS SQUIBB COMPANY-15257439

PATIENT
  Age: 51 Year
  Sex: Male

DRUGS (1)
  1. MITOMYCIN [Suspect]
     Indication: URINARY BLADDER POLYP
     Dosage: ROUTE=IB; INJECTION
     Dates: start: 20100226, end: 20100226

REACTIONS (3)
  - ABDOMINAL PAIN [None]
  - BLADDER NECROSIS [None]
  - DYSURIA [None]
